FAERS Safety Report 8850589 (Version 1)
Quarter: 2012Q4

REPORT INFORMATION
  Report Type: 
  Country: US (occurrence: US)
  Receive Date: 20121019
  Receipt Date: 20121019
  Transmission Date: 20130627
  Serious: No
  Sender: FDA-Public Use
  Company Number: US-ASTRAZENECA-2012SE78608

PATIENT
  Age: 22 Year
  Sex: Female

DRUGS (4)
  1. SEROQUEL XR [Suspect]
     Indication: BIPOLAR I DISORDER
     Route: 048
  2. IBUPROFEN [Concomitant]
     Route: 048
  3. LITHIUM [Concomitant]
  4. METFORMIN [Concomitant]

REACTIONS (1)
  - Ammonia increased [Unknown]
